FAERS Safety Report 11857272 (Version 1)
Quarter: 2015Q4

REPORT INFORMATION
  Report Type: Report from Study
  Country: US (occurrence: US)
  Receive Date: 20151221
  Receipt Date: 20151221
  Transmission Date: 20160305
  Serious: Yes (Hospitalization)
  Sender: FDA-Public Use
  Company Number: US-JNJFOC-20151212945

PATIENT
  Sex: Male

DRUGS (1)
  1. IMBRUVICA [Suspect]
     Active Substance: IBRUTINIB
     Indication: PRODUCT USED FOR UNKNOWN INDICATION
     Route: 065

REACTIONS (6)
  - Stomatitis [Unknown]
  - Cardiac disorder [Recovered/Resolved]
  - Blood count abnormal [Unknown]
  - Therapeutic response unexpected [Unknown]
  - Rash [Unknown]
  - Muscle spasms [Unknown]

NARRATIVE: CASE EVENT DATE: 201511
